FAERS Safety Report 8247757-X (Version None)
Quarter: 2012Q1

REPORT INFORMATION
  Report Type: 
  Country: None (occurrence: None)
  Receive Date: 20120330
  Receipt Date: 20120321
  Transmission Date: 20120608
  Serious: Yes (Other)
  Sender: FDA-Public Use
  Company Number: JP-GLAXOSMITHKLINE-B0790900A

PATIENT
  Age: 3 Decade
  Sex: Male

DRUGS (1)
  1. PAXIL [Suspect]
     Indication: SOCIAL PHOBIA
     Route: 048

REACTIONS (3)
  - DISINHIBITION [None]
  - MOOD ALTERED [None]
  - HYPOMANIA [None]
